FAERS Safety Report 15540092 (Version 2)
Quarter: 2018Q4

REPORT INFORMATION
  Report Type: Report from Study
  Country: US (occurrence: US)
  Receive Date: 20181023
  Receipt Date: 20181029
  Transmission Date: 20190205
  Serious: No
  Sender: FDA-Public Use
  Company Number: US-TESARO-2018-TSO1322-US

PATIENT
  Age: 55 Year
  Sex: Female

DRUGS (1)
  1. ZEJULA [Suspect]
     Active Substance: NIRAPARIB
     Indication: OVARIAN CANCER
     Dosage: 200 MG, QPM WITHOUT FOOD
     Route: 048
     Dates: start: 20180625

REACTIONS (4)
  - Nail discolouration [Unknown]
  - Arthralgia [Unknown]
  - Dry mouth [Unknown]
  - Tongue discomfort [Unknown]

NARRATIVE: CASE EVENT DATE: 201806
